FAERS Safety Report 5672274-0 (Version None)
Quarter: 2008Q1

REPORT INFORMATION
  Report Type: 
  Country: None (occurrence: None)
  Receive Date: 20080319
  Receipt Date: 20080306
  Transmission Date: 20080703
  Serious: Yes (Hospitalization)
  Sender: FDA-Public Use
  Company Number: US-PURDUE-USA_2008_0032028

PATIENT
  Sex: Female

DRUGS (13)
  1. MS CONTIN [Suspect]
     Indication: DRUG USE FOR UNKNOWN INDICATION
  2. PROZAC [Concomitant]
     Dosage: 20 MG, DAILY
  3. XANAX [Concomitant]
     Dosage: 1 MG, QID
  4. NORTRIPTYLINE HCL [Concomitant]
     Dosage: 25 MG, HS
  5. AMBIEN [Concomitant]
     Dosage: 10 MG, HS
  6. TRAZODONE HCL [Concomitant]
     Dosage: 150 MG, HS
  7. ROBAXIN [Concomitant]
     Dosage: 1000 MG, QID
  8. REGLAN [Concomitant]
     Dosage: 10 MG, AC + HS
  9. VENTOLIN [Concomitant]
     Dosage: 2 PUFF, PRN
     Route: 055
  10. SINGULAIR [Concomitant]
     Dosage: 10 MG, HS
  11. VOLMAX [Concomitant]
     Dosage: 4 MG, BID
  12. ESTROGEN NOS [Concomitant]
     Route: 062
  13. NORCO [Concomitant]

REACTIONS (5)
  - ABDOMINAL PAIN [None]
  - ANXIETY [None]
  - DEPRESSION [None]
  - DIARRHOEA [None]
  - SOMNOLENCE [None]
